FAERS Safety Report 20868345 (Version 1)
Quarter: 2022Q2

REPORT INFORMATION
  Report Type: Spontaneous
  Country: US (occurrence: None)
  Receive Date: 20220524
  Receipt Date: 20220524
  Transmission Date: 20220721
  Serious: Yes (Hospitalization)
  Sender: FDA-Public Use
  Company Number: None

PATIENT
  Age: 66 Year
  Sex: Male
  Weight: 67.5 kg

DRUGS (2)
  1. TIXAGEVIMAB [Suspect]
     Active Substance: TIXAGEVIMAB
     Indication: COVID-19 prophylaxis
     Dosage: FREQUENCY : ONCE;?
     Route: 030
     Dates: start: 20220523, end: 20220523
  2. CILGAVIMAB [Suspect]
     Active Substance: CILGAVIMAB
     Indication: COVID-19 prophylaxis
     Dosage: FREQUENCY : ONCE;?
     Route: 030
     Dates: start: 20220523, end: 20220523

REACTIONS (11)
  - Confusional state [None]
  - Malaise [None]
  - Anxiety [None]
  - Tremor [None]
  - Retching [None]
  - Tachypnoea [None]
  - Leukocytosis [None]
  - Abdominal infection [None]
  - Encephalopathy [None]
  - Alcohol withdrawal syndrome [None]
  - Respiratory tract infection [None]

NARRATIVE: CASE EVENT DATE: 20220523
